FAERS Safety Report 5882326-8 (Version None)
Quarter: 2008Q3

REPORT INFORMATION
  Report Type: 
  Country: None (occurrence: None)
  Receive Date: 20080912
  Receipt Date: 20080731
  Transmission Date: 20090109
  Serious: No
  Sender: FDA-Public Use
  Company Number: US-ABBOTT-08P-163-0467701-00

PATIENT
  Sex: Female
  Weight: 94.886 kg

DRUGS (14)
  1. HUMIRA [Suspect]
     Indication: CROHN'S DISEASE
     Route: 058
     Dates: start: 20080701
  2. HUMIRA [Suspect]
  3. HUMIRA [Suspect]
  4. METHOTREXATE [Concomitant]
     Indication: CROHN'S DISEASE
     Route: 048
     Dates: start: 20080601
  5. METHOTREXATE [Concomitant]
     Dates: start: 20080601
  6. CYPROHEPTADINE HYDROCHLORIDE [Concomitant]
     Indication: CROHN'S DISEASE
     Route: 048
     Dates: start: 20070101
  7. METRONIDAZOLE [Concomitant]
     Indication: CROHN'S DISEASE
     Route: 048
     Dates: start: 20070101
  8. OMEPRAVOLE [Concomitant]
     Indication: CROHN'S DISEASE
     Route: 048
     Dates: start: 20070101
  9. CYANOCOBALAMIN [Concomitant]
     Indication: CROHN'S DISEASE
     Route: 048
  10. NICOTINAM. W/PYRIDOXI. HCL/RIBOFL./THIAM. HCL [Concomitant]
     Indication: CROHN'S DISEASE
     Route: 048
  11. FISH OIL OMEGA 3 [Concomitant]
     Indication: CROHN'S DISEASE
     Route: 048
  12. IBEUPROPHEN [Concomitant]
     Indication: PAIN
     Dosage: 3 - 4 X /DAY AS NEEDED
     Route: 048
  13. ASCORBIC ACID [Concomitant]
     Indication: CROHN'S DISEASE
     Route: 048
  14. CA/400 VIT D [Concomitant]
     Indication: CROHN'S DISEASE
     Route: 048

REACTIONS (1)
  - HYPOAESTHESIA [None]
